FAERS Safety Report 6421077-8 (Version None)
Quarter: 2009Q4

REPORT INFORMATION
  Report Type: 
  Country: None (occurrence: None)
  Receive Date: 20091028
  Receipt Date: 20091022
  Transmission Date: 20100525
  Serious: Yes (Death, Life-Threatening, Hospitalization)
  Sender: FDA-Public Use
  Company Number: CLOF-1000730

PATIENT
  Age: 7 Year
  Sex: Female
  Weight: 28.7 kg

DRUGS (9)
  1. CLOLAR [Suspect]
     Indication: ACUTE LYMPHOCYTIC LEUKAEMIA
     Dosage: 20 MG/M2, QDX3, INTRAVENOUS
     Route: 042
     Dates: start: 20090219, end: 20090221
  2. CLOLAR [Suspect]
     Indication: ACUTE LYMPHOCYTIC LEUKAEMIA
     Dosage: 20 MG/M2, QDX3, INTRAVENOUS
     Route: 042
     Dates: start: 20090226, end: 20090228
  3. CYCLOPHOSPHAMIDE [Suspect]
     Indication: ACUTE LYMPHOCYTIC LEUKAEMIA
     Dosage: 200 MG/M2, QD, INTRAVENOUS; 400 MG/M2, QD, INTRAVENOUS;  400 MG/M2 QD, INTRAVENOUS
     Route: 042
     Dates: start: 20090218, end: 20090219
  4. CYCLOPHOSPHAMIDE [Suspect]
     Indication: ACUTE LYMPHOCYTIC LEUKAEMIA
     Dosage: 200 MG/M2, QD, INTRAVENOUS; 400 MG/M2, QD, INTRAVENOUS;  400 MG/M2 QD, INTRAVENOUS
     Route: 042
     Dates: start: 20090220, end: 20090221
  5. CYCLOPHOSPHAMIDE [Suspect]
     Indication: ACUTE LYMPHOCYTIC LEUKAEMIA
     Dosage: 200 MG/M2, QD, INTRAVENOUS; 400 MG/M2, QD, INTRAVENOUS;  400 MG/M2 QD, INTRAVENOUS
     Route: 042
     Dates: start: 20090226, end: 20090228
  6. HYDOCORTISONE (HYDROCORTISONE) [Concomitant]
  7. HYDROCORTONE [Concomitant]
  8. ACETAMINOPHEN [Concomitant]
  9. ACETAMINOPHEN [Concomitant]

REACTIONS (5)
  - DISEASE PROGRESSION [None]
  - FEBRILE NEUTROPENIA [None]
  - HYPOKALAEMIA [None]
  - LYMPHOPENIA [None]
  - THROMBOCYTOPENIA [None]
